FAERS Safety Report 12963261 (Version 1)
Quarter: 2016Q4

REPORT INFORMATION
  Report Type: Other
  Country: US (occurrence: US)
  Receive Date: 20161122
  Receipt Date: 20161122
  Transmission Date: 20170207
  Serious: Yes (Other)
  Sender: FDA-Public Use
  Company Number: US-SHIRE-US201616619

PATIENT
  Age: 69 Year
  Sex: Male
  Weight: 136.5 kg

DRUGS (1)
  1. XIIDRA [Suspect]
     Active Substance: LIFITEGRAST
     Indication: DRY EYE
     Dosage: 1 GTT, 2X/DAY:BID
     Route: 047
     Dates: start: 20161107

REACTIONS (3)
  - Eye irritation [Not Recovered/Not Resolved]
  - Vision blurred [Not Recovered/Not Resolved]
  - Dyschromatopsia [Not Recovered/Not Resolved]

NARRATIVE: CASE EVENT DATE: 20161107
